FAERS Safety Report 4678873-7 (Version None)
Quarter: 2005Q2

REPORT INFORMATION
  Report Type: 
  Country: None (occurrence: None)
  Receive Date: 20050531
  Receipt Date: 20050516
  Transmission Date: 20051028
  Serious: Yes (Other)
  Sender: FDA-Public Use
  Company Number: 2005040889

PATIENT
  Age: 55 Year
  Sex: Female

DRUGS (13)
  1. CELEBREX [Suspect]
     Indication: ARTHRITIS
     Dosage: 200 MG (200 MG, 1 IN 1 D), ORAL
     Route: 048
  2. CELEBREX [Suspect]
     Indication: OSTEOARTHRITIS
     Dosage: 200 MG (200 MG, 1 IN 1 D), ORAL
     Route: 048
  3. NEURONTIN [Suspect]
     Indication: CONVULSION
     Dosage: 900 MG (300 MG, 3 IN 1 D), ORAL
     Route: 048
  4. NEURONTIN [Suspect]
     Indication: MUSCLE SPASMS
     Dosage: 900 MG (300 MG, 3 IN 1 D), ORAL
     Route: 048
  5. GABAPENTIN [Suspect]
     Indication: CONVULSION
     Dosage: (300 MG), ORAL
     Route: 048
  6. GABAPENTIN [Suspect]
     Indication: MUSCLE SPASMS
     Dosage: (300 MG), ORAL
     Route: 048
  7. BEXTRA [Suspect]
     Indication: OSTEOARTHRITIS
     Dosage: ORAL
     Route: 048
  8. NEXIUM [Concomitant]
  9. ELAVIL [Concomitant]
  10. TYLOX (OXYCODONE HYDROCHLORIDE, PARACETAMOL) [Concomitant]
  11. LASIX (FUROSEMIDE0 [Concomitant]
  12. KLONOPIN [Concomitant]
  13. VOLTAREN (D9CLOFENAC SODIUM) [Concomitant]

REACTIONS (17)
  - BLOOD PRESSURE INCREASED [None]
  - CARDIAC MURMUR [None]
  - CARDIAC VALVE DISEASE [None]
  - CONVULSION [None]
  - DYSSTASIA [None]
  - FLUID RETENTION [None]
  - KERATORHEXIS [None]
  - MUSCLE SPASMS [None]
  - MUSCULOSKELETAL DISCOMFORT [None]
  - OEDEMA PERIPHERAL [None]
  - PHARMACEUTICAL PRODUCT COMPLAINT [None]
  - PSORIATIC ARTHROPATHY [None]
  - RHEUMATOID ARTHRITIS [None]
  - STOOL ANALYSIS ABNORMAL [None]
  - TREMOR [None]
  - URINARY INCONTINENCE [None]
  - WEIGHT DECREASED [None]
